FAERS Safety Report 6876825-X (Version None)
Quarter: 2010Q3

REPORT INFORMATION
  Report Type: 
  Country: None (occurrence: None)
  Receive Date: 20100727
  Receipt Date: 20100715
  Transmission Date: 20110219
  Serious: Yes (Hospitalization)
  Sender: FDA-Public Use
  Company Number: US-ROCHE-713709

PATIENT
  Sex: Male
  Weight: 60.5 kg

DRUGS (6)
  1. BEVACIZUMAB [Suspect]
     Indication: METASTATIC GASTRIC CANCER
     Dosage: DOSE AND FREQUENCY: NOT REPORTED
     Route: 065
  2. FLUOROURACIL [Suspect]
     Indication: METASTATIC GASTRIC CANCER
     Dosage: FORM:INFUSION, BOLUS DOSE
     Route: 065
     Dates: start: 20100525
  3. FLUOROURACIL [Suspect]
     Dosage: CONTINUOUS INFUSION:4104 MG
     Route: 065
     Dates: end: 20100527
  4. FLUOROURACIL [Suspect]
     Dosage: DOSE REDUCED, CYCLE 2
     Route: 065
     Dates: start: 20100608
  5. LEUCOVORIN CALCIUM [Suspect]
     Indication: METASTATIC GASTRIC CANCER
     Dosage: DOSE AND FREQUENCY: NOT REPORTED
     Route: 065
  6. ELOXATIN [Suspect]
     Indication: METASTATIC GASTRIC CANCER
     Dosage: DOSE AND FREQUENCY: NOT REPORTED
     Route: 065

REACTIONS (4)
  - CONFUSIONAL STATE [None]
  - HYPOXIA [None]
  - LUNG INFILTRATION [None]
  - PYREXIA [None]
